FAERS Safety Report 19001058 (Version 1)
Quarter: 2021Q1

REPORT INFORMATION
  Report Type: Report from Study
  Country: CO (occurrence: CO)
  Receive Date: 20210312
  Receipt Date: 20210312
  Transmission Date: 20210420
  Serious: Yes (Other)
  Sender: FDA-Public Use
  Company Number: NVSC2021CO015095

PATIENT
  Sex: Male
  Weight: 38 kg

DRUGS (2)
  1. OMNITROPE [Suspect]
     Active Substance: SOMATROPIN
     Indication: UNDERWEIGHT
     Dosage: 1.7 MG, QD (STARTED 2 YEARS EGO)
     Route: 058
     Dates: end: 202101
  2. OMNITROPE [Suspect]
     Active Substance: SOMATROPIN
     Indication: GROWTH HORMONE DEFICIENCY
     Dosage: UNK UNK, QD
     Route: 003
     Dates: start: 20180615

REACTIONS (1)
  - Sleep apnoea syndrome [Unknown]
